FAERS Safety Report 4293501-0 (Version None)
Quarter: 2004Q1

REPORT INFORMATION
  Report Type: 
  Country: None (occurrence: None)
  Receive Date: 20040210
  Receipt Date: 20031204
  Transmission Date: 20041129
  Serious: No
  Sender: FDA-Public Use
  Company Number: 2004SE00588

PATIENT
  Sex: Male
  Weight: 100 kg

DRUGS (1)
  1. OFNIMAREX [Suspect]
     Indication: GASTROOESOPHAGEAL REFLUX DISEASE

REACTIONS (4)
  - ASTHENIA [None]
  - GASTROINTESTINAL DISORDER [None]
  - HYPOTENSION [None]
  - PARALYSIS [None]
